FAERS Safety Report 8977079 (Version 1)
Quarter: 2012Q4

REPORT INFORMATION
  Report Type: Report from Study
  Country: NL (occurrence: NL)
  Receive Date: 20121220
  Receipt Date: 20121220
  Transmission Date: 20130627
  Serious: Yes (Hospitalization)
  Sender: FDA-Public Use
  Company Number: NL-BAXTER-2012BAX027126

PATIENT
  Age: 31 Year
  Sex: Male
  Weight: 82 kg

DRUGS (41)
  1. ENDOXAN I.V., POEDER VOOR OPLOSSING VOOR INJECTIE 200, 500, 1000 MG [Suspect]
     Indication: DIFFUSE LARGE B-CELL LYMPHOMA
     Route: 042
     Dates: start: 20100927
  2. ENDOXAN I.V., POEDER VOOR OPLOSSING VOOR INJECTIE 200, 500, 1000 MG [Suspect]
     Route: 042
     Dates: start: 20101011
  3. ENDOXAN I.V., POEDER VOOR OPLOSSING VOOR INJECTIE 200, 500, 1000 MG [Suspect]
     Route: 042
     Dates: start: 20101116
  4. ENDOXAN I.V., POEDER VOOR OPLOSSING VOOR INJECTIE 200, 500, 1000 MG [Suspect]
     Route: 042
     Dates: start: 20101130
  5. ENDOXAN I.V., POEDER VOOR OPLOSSING VOOR INJECTIE 200, 500, 1000 MG [Suspect]
     Route: 042
     Dates: start: 20101221
  6. ENDOXAN I.V., POEDER VOOR OPLOSSING VOOR INJECTIE 200, 500, 1000 MG [Suspect]
     Route: 042
     Dates: start: 20110110
  7. ENDOXAN I.V., POEDER VOOR OPLOSSING VOOR INJECTIE 200, 500, 1000 MG [Suspect]
     Dosage: REDUCED DOSE
     Route: 042
  8. ENDOXAN I.V., POEDER VOOR OPLOSSING VOOR INJECTIE 200, 500, 1000 MG [Suspect]
     Route: 042
     Dates: start: 20110201
  9. RITUXIMAB [Suspect]
     Indication: DIFFUSE LARGE B-CELL LYMPHOMA
     Route: 042
     Dates: start: 20100927
  10. RITUXIMAB [Suspect]
     Route: 042
     Dates: start: 20101116
  11. RITUXIMAB [Suspect]
     Route: 042
     Dates: start: 20101130
  12. RITUXIMAB [Suspect]
     Route: 042
     Dates: start: 20101221
  13. RITUXIMAB [Suspect]
     Route: 042
     Dates: start: 20110110
  14. RITUXIMAB [Suspect]
     Route: 042
     Dates: start: 20110201
  15. PREDNISONE [Suspect]
     Indication: DIFFUSE LARGE B-CELL LYMPHOMA
     Route: 048
     Dates: start: 20100927
  16. PREDNISONE [Suspect]
     Route: 048
     Dates: start: 20101116
  17. PREDNISONE [Suspect]
     Route: 048
     Dates: start: 20101130
  18. PREDNISONE [Suspect]
     Route: 048
     Dates: start: 20101221
  19. PREDNISONE [Suspect]
     Route: 048
     Dates: start: 20110110
  20. PREDNISONE [Suspect]
     Dosage: REDUCED DOSE
     Route: 048
  21. PREDNISONE [Suspect]
     Route: 048
     Dates: start: 20110201
  22. DOXORUBICIN [Suspect]
     Indication: DIFFUSE LARGE B-CELL LYMPHOMA
     Route: 042
     Dates: start: 20100927
  23. DOXORUBICIN [Suspect]
     Route: 042
     Dates: start: 20101011
  24. DOXORUBICIN [Suspect]
     Route: 042
     Dates: start: 20101116
  25. DOXORUBICIN [Suspect]
     Route: 042
     Dates: start: 20101130
  26. DOXORUBICIN [Suspect]
     Route: 042
     Dates: start: 20101221
  27. DOXORUBICIN [Suspect]
     Route: 042
     Dates: start: 20110110
  28. DOXORUBICIN [Suspect]
     Dosage: REDUCED DOSE
     Route: 042
  29. DOXORUBICIN [Suspect]
     Route: 042
     Dates: start: 20110201
  30. VINCRISTINE [Suspect]
     Indication: DIFFUSE LARGE B-CELL LYMPHOMA
     Route: 042
     Dates: start: 20100927
  31. VINCRISTINE [Suspect]
     Route: 042
     Dates: start: 20101116
  32. VINCRISTINE [Suspect]
     Route: 042
     Dates: start: 20101130
  33. VINCRISTINE [Suspect]
     Route: 042
     Dates: start: 20101221
  34. VINCRISTINE [Suspect]
     Route: 042
     Dates: start: 20110110
  35. VINCRISTINE [Suspect]
     Route: 042
     Dates: start: 20110201
  36. G-CSF [Suspect]
     Indication: DIFFUSE LARGE B-CELL LYMPHOMA
     Route: 058
     Dates: start: 20100928
  37. G-CSF [Suspect]
     Route: 058
     Dates: start: 20101117
  38. G-CSF [Suspect]
     Route: 058
     Dates: start: 20101201
  39. G-CSF [Suspect]
     Route: 058
     Dates: start: 20101221
  40. G-CSF [Suspect]
     Route: 058
     Dates: start: 20110111
  41. G-CSF [Suspect]
     Route: 058
     Dates: start: 20110202

REACTIONS (9)
  - Pleural effusion [Recovered/Resolved]
  - Febrile neutropenia [Recovered/Resolved]
  - Infection [Recovered/Resolved]
  - Febrile neutropenia [Recovered/Resolved]
  - Febrile neutropenia [Recovered/Resolved]
  - Febrile neutropenia [Recovered/Resolved]
  - Febrile neutropenia [Recovered/Resolved]
  - Infection [Recovered/Resolved]
  - Infection [Recovered/Resolved]
